FAERS Safety Report 10269778 (Version 1)
Quarter: 2014Q2

REPORT INFORMATION
  Report Type: Spontaneous
  Country: JP (occurrence: None)
  Receive Date: 20140625
  Receipt Date: 20140625
  Transmission Date: 20141212
  Serious: Yes (Other)
  Sender: FDA-Public Use
  Company Number: FK201402461

PATIENT
  Sex: Male
  Weight: 78.2 kg

DRUGS (6)
  1. METHOTREXATE (MANUFACTURER UNKNOWN) (METHOTREXATE) (METHOTREXATE) [Suspect]
     Indication: PRODUCT USED FOR UNKNOWN INDICATION
     Route: 048
  2. HUMIRA (ADALIMUMAB) (ADALIMUMAB) [Suspect]
     Indication: PSORIASIS
     Dates: start: 201005
  3. STELARA (USTEKINUMAB) (USTEKINUMAB) [Suspect]
     Indication: PRODUCT USED FOR UNKNOWN INDICATION
     Dates: start: 201106
  4. DEPOMEDRONE STAT (METHYLPREDNISOLONE ACETATE) [Concomitant]
  5. INFIXIMAB (INFLIXIMAB) [Concomitant]
  6. PREDNISOLONE (PREDNISOLONE) [Concomitant]

REACTIONS (4)
  - Gait disturbance [None]
  - Joint swelling [None]
  - Arthralgia [None]
  - Hepatic function abnormal [None]
